FAERS Safety Report 16207524 (Version 3)
Quarter: 2019Q2

REPORT INFORMATION
  Report Type: Spontaneous
  Country: US (occurrence: US)
  Receive Date: 20190417
  Receipt Date: 20190517
  Transmission Date: 20190711
  Serious: No
  Sender: FDA-Public Use
  Company Number: US-BAUSCH-BL-2019-010554

PATIENT
  Age: 67 Year
  Sex: Female

DRUGS (4)
  1. HYDROQUINONE. [Suspect]
     Active Substance: HYDROQUINONE
     Indication: PRODUCT USED FOR UNKNOWN INDICATION
     Route: 065
     Dates: start: 20190311
  2. TRETINOIN CREAM 0.025% [Interacting]
     Active Substance: TRETINOIN
     Indication: PRODUCT USE IN UNAPPROVED INDICATION
  3. FLUTICASONE. [Interacting]
     Active Substance: FLUTICASONE
     Indication: SINUS DISORDER
     Dosage: APPROXIMATELY 5 YEARS AGO. SHE WAS USING IT INTERMITTENTLY
     Route: 065
     Dates: start: 2014, end: 2014
  4. TRETINOIN CREAM 0.025% [Suspect]
     Active Substance: TRETINOIN
     Indication: THERAPEUTIC SKIN CARE TOPICAL
     Route: 061
     Dates: start: 20190311, end: 201903

REACTIONS (13)
  - Constipation [Recovering/Resolving]
  - Product use in unapproved indication [Unknown]
  - Insomnia [Recovering/Resolving]
  - Agitation [Recovered/Resolved]
  - Condition aggravated [Recovering/Resolving]
  - Arthralgia [Recovering/Resolving]
  - Anxiety [Recovering/Resolving]
  - Asthenia [Recovering/Resolving]
  - Rosacea [Recovering/Resolving]
  - Thirst [Recovering/Resolving]
  - Drug interaction [Unknown]
  - Hot flush [Recovering/Resolving]
  - Night sweats [Recovering/Resolving]

NARRATIVE: CASE EVENT DATE: 201903
